FAERS Safety Report 5103801-X (Version None)
Quarter: 2006Q3

REPORT INFORMATION
  Report Type: 
  Country: None (occurrence: None)
  Receive Date: 20060802
  Receipt Date: 20051005
  Transmission Date: 20061208
  Serious: Yes (Hospitalization)
  Sender: FDA-Public Use
  Company Number: US-JNJFOC-20050900262

PATIENT
  Age: 26 Year
  Sex: Female

DRUGS (4)
  1. ACETAMINOPHEN [Suspect]
     Indication: DRUG USE FOR UNKNOWN INDICATION
  2. HALDOL [Concomitant]
  3. COGENTIN [Concomitant]
  4. DOXEPIN HCL [Concomitant]

REACTIONS (1)
  - OVERDOSE [None]
